FAERS Safety Report 9888474 (Version 3)
Quarter: 2014Q3

REPORT INFORMATION
  Report Type: Report from Study
  Country: BR (occurrence: BR)
  Receive Date: 20140211
  Receipt Date: 20140720
  Transmission Date: 20150326
  Serious: Yes (Death, Hospitalization, Disabling, Other)
  Sender: FDA-Public Use
  Company Number: BR-ROCHE-1345589

PATIENT
  Sex: Female
  Weight: 78 kg

DRUGS (5)
  1. LOSARTAN [Concomitant]
     Active Substance: LOSARTAN
     Indication: HYPERTENSION
     Route: 065
  2. GLIFAGE [Concomitant]
     Active Substance: METFORMIN HYDROCHLORIDE
     Indication: DIABETES MELLITUS
     Route: 065
  3. ACTEMRA [Suspect]
     Active Substance: TOCILIZUMAB
     Indication: RHEUMATOID ARTHRITIS
     Route: 065
     Dates: start: 20140114
  4. ACTEMRA [Suspect]
     Active Substance: TOCILIZUMAB
     Route: 065
     Dates: start: 20140211
  5. ACTEMRA [Suspect]
     Active Substance: TOCILIZUMAB
     Route: 065
     Dates: start: 20140320

REACTIONS (8)
  - Walking disability [Recovered/Resolved]
  - Movement disorder [Recovered/Resolved]
  - Gastric disorder [Recovered/Resolved]
  - Infection [Fatal]
  - Fall [Unknown]
  - Intestinal perforation [Recovered/Resolved]
  - Rheumatoid arthritis [Recovered/Resolved]
  - Femur fracture [Recovered/Resolved]
